FAERS Safety Report 9013343 (Version 1)
Quarter: 2013Q1

REPORT INFORMATION
  Report Type: Spontaneous
  Country: ES (occurrence: ES)
  Receive Date: 20130114
  Receipt Date: 20130114
  Transmission Date: 20140127
  Serious: Yes (Other)
  Sender: FDA-Public Use
  Company Number: ES-AMGEN-ESPSP2013001076

PATIENT
  Age: 78 Year
  Sex: Female

DRUGS (1)
  1. PROLIA [Suspect]
     Indication: OSTEOPOROSIS
     Dosage: UNK
     Dates: start: 20120618

REACTIONS (8)
  - Depressed mood [Recovering/Resolving]
  - Malaise [Not Recovered/Not Resolved]
  - Muscle spasms [Recovering/Resolving]
  - Abdominal pain [Recovering/Resolving]
  - Paraesthesia [Unknown]
  - Nervousness [Recovering/Resolving]
  - Fear [Recovering/Resolving]
  - Insomnia [Recovering/Resolving]
